FAERS Safety Report 5779141-2 (Version None)
Quarter: 2008Q2

REPORT INFORMATION
  Report Type: 
  Country: None (occurrence: None)
  Receive Date: 20080619
  Receipt Date: 20080609
  Transmission Date: 20081010
  Serious: Yes (Other)
  Sender: FDA-Public Use
  Company Number: US-BAXTER-2008BH005980

PATIENT
  Sex: Male

DRUGS (3)
  1. DIANEAL [Suspect]
     Indication: PERITONEAL DIALYSIS
     Dosage: DOSE UNIT:UNKNOWN
     Route: 033
  2. DIANEAL [Suspect]
     Indication: PERITONEAL DIALYSIS
     Dosage: DOSE UNIT:UNKNOWN
     Route: 033
  3. MANUGEL [Suspect]
     Dosage: DOSE UNIT:UNKNOWN
     Dates: start: 20080101, end: 20080101

REACTIONS (3)
  - COUGH [None]
  - HYPERSENSITIVITY [None]
  - RESPIRATORY DISTRESS [None]
